FAERS Safety Report 5337814-X (Version None)
Quarter: 2007Q2

REPORT INFORMATION
  Report Type: 
  Country: None (occurrence: None)
  Receive Date: 20070309
  Receipt Date: 20060207
  Transmission Date: 20071010
  Serious: Yes (Other)
  Sender: FDA-Public Use
  Company Number: US200601000487

PATIENT
  Age: 55 Year
  Sex: Male
  Weight: 88 kg

DRUGS (3)
  1. GEMZAR [Suspect]
     Indication: SARCOMA
     Dosage: SEE IMAGE
     Route: 042
     Dates: start: 20050801, end: 20051206
  2. GEMZAR [Suspect]
     Indication: SARCOMA
     Dosage: SEE IMAGE
     Route: 042
     Dates: start: 20051206, end: 20051206
  3. TAXOTERE [Concomitant]

REACTIONS (1)
  - RENAL FAILURE [None]
